FAERS Safety Report 19046652 (Version 2)
Quarter: 2021Q2

REPORT INFORMATION
  Report Type: Spontaneous
  Country: GB (occurrence: GB)
  Receive Date: 20210323
  Receipt Date: 20210423
  Transmission Date: 20210717
  Serious: Yes (Hospitalization, Other)
  Sender: FDA-Public Use
  Company Number: GB-INTERCEPT-PM2021000747

PATIENT
  Sex: Female

DRUGS (2)
  1. OCALIVA [Suspect]
     Active Substance: OBETICHOLIC ACID
     Indication: PRIMARY BILIARY CHOLANGITIS
     Dosage: 5 MILLIGRAM, QD
     Route: 048
     Dates: start: 202003, end: 2021
  2. OCALIVA [Suspect]
     Active Substance: OBETICHOLIC ACID
     Dosage: 5 MILLIGRAM, QD
     Route: 048
     Dates: start: 2021

REACTIONS (4)
  - COVID-19 [Recovered/Resolved]
  - Insomnia [Unknown]
  - Therapy interrupted [Recovered/Resolved]
  - Continuous positive airway pressure [Recovered/Resolved]

NARRATIVE: CASE EVENT DATE: 2021
